FAERS Safety Report 25933431 (Version 1)
Quarter: 2025Q4

REPORT INFORMATION
  Report Type: Spontaneous
  Country: CN (occurrence: CN)
  Receive Date: 20251017
  Receipt Date: 20251017
  Transmission Date: 20260117
  Serious: Yes (Hospitalization, Other)
  Sender: AMNEAL
  Company Number: CN-AMNEAL PHARMACEUTICALS-2025-AMRX-03913

PATIENT
  Age: 51 Year
  Sex: Male

DRUGS (2)
  1. PREDNISONE [Suspect]
     Active Substance: PREDNISONE
     Indication: Chronic kidney disease
     Dosage: 10 MILLIGRAM, DAILY
     Route: 065
  2. PREDNISONE [Suspect]
     Active Substance: PREDNISONE
     Indication: Immune-mediated nephritis
     Dosage: 5 MILLIGRAM, DAILY
     Route: 065

REACTIONS (2)
  - Myocardial infarction [Recovered/Resolved]
  - Atherosclerotic plaque rupture [Recovered/Resolved]
